FAERS Safety Report 7668146-2 (Version None)
Quarter: 2011Q3

REPORT INFORMATION
  Report Type: 
  Country: None (occurrence: None)
  Receive Date: 20110808
  Receipt Date: 20110803
  Transmission Date: 20111222
  Serious: Yes (Other)
  Sender: FDA-Public Use
  Company Number: US-PFIZER INC-2011177818

PATIENT
  Sex: Female
  Weight: 56 kg

DRUGS (8)
  1. SYNTHROID [Concomitant]
     Dosage: 100 MG
  2. LYRICA [Suspect]
     Dosage: UNK
     Dates: start: 20110101, end: 20110731
  3. LYRICA [Suspect]
     Indication: SPINAL COLUMN INJURY
     Dosage: 75 MG, 2X/DAY
     Route: 048
     Dates: start: 20110101
  4. LYRICA [Suspect]
     Indication: JOINT INJURY
     Dosage: 150 MG, 2X/DAY
     Route: 048
     Dates: start: 20110714, end: 20110731
  5. CELEBREX [Concomitant]
     Dosage: 200 MG, DAILY
  6. HYDROCODONE [Concomitant]
     Dosage: 7.5 MG, AS NEEDED
  7. SEROTONIN [Concomitant]
     Dosage: 50 MG
  8. ZOLOFT [Concomitant]
     Dosage: UNK

REACTIONS (2)
  - WITHDRAWAL SYNDROME [None]
  - SENSORY DISTURBANCE [None]
